FAERS Safety Report 5922091-9 (Version None)
Quarter: 2008Q4

REPORT INFORMATION
  Report Type: 
  Country: None (occurrence: None)
  Receive Date: 20081017
  Receipt Date: 20081008
  Transmission Date: 20090506
  Serious: Yes (Other)
  Sender: FDA-Public Use
  Company Number: B0542095A

PATIENT
  Age: 19 Year
  Sex: Female

DRUGS (2)
  1. FLUTICASONE PROPIONATE [Suspect]
     Indication: EOSINOPHILIC OESOPHAGITIS
     Dosage: .22MG AS DIRECTED
     Route: 055
  2. PANTOPRAZOLE SODIUM [Concomitant]
     Indication: EOSINOPHILIC OESOPHAGITIS
     Dosage: 40MG PER DAY
     Route: 065

REACTIONS (9)
  - CHEST PAIN [None]
  - DYSPHAGIA [None]
  - EOSINOPHILIC OESOPHAGITIS [None]
  - HERPES OESOPHAGITIS [None]
  - HERPES SIMPLEX [None]
  - ILL-DEFINED DISORDER [None]
  - ODYNOPHAGIA [None]
  - OESOPHAGEAL ULCER [None]
  - PHARYNGEAL LESION [None]
